FAERS Safety Report 7994990-8 (Version None)
Quarter: 2011Q4

REPORT INFORMATION
  Report Type: 
  Country: None (occurrence: None)
  Receive Date: 20111220
  Receipt Date: 20111210
  Transmission Date: 20120403
  Serious: Yes (Other)
  Sender: FDA-Public Use
  Company Number: US-JNJFOC-20070400685

PATIENT
  Sex: Male
  Weight: 78.47 kg

DRUGS (60)
  1. CYCLOPHOSPHAMIDE [Suspect]
     Indication: BURKITT'S LYMPHOMA
     Route: 065
     Dates: end: 20070509
  2. METHOTREXATE [Suspect]
     Route: 042
     Dates: end: 20070509
  3. IFOSFAMIDE [Suspect]
     Route: 065
  4. ETOPOSIDE [Suspect]
     Route: 065
  5. CYTARABINE [Suspect]
     Route: 065
     Dates: end: 20070509
  6. METHOTREXATE [Concomitant]
     Route: 037
  7. ACTIVAN [Concomitant]
     Dosage: AS NECESSARY
     Route: 042
  8. REGLAN [Concomitant]
     Dosage: AS NECESSARY
     Route: 042
  9. NARCAN [Concomitant]
     Route: 042
  10. POTASSIUM CHLORIDE [Concomitant]
     Route: 048
  11. METHOTREXATE [Suspect]
     Route: 042
  12. RITUXIMAB [Suspect]
     Route: 042
     Dates: start: 20070206
  13. ANALAPRIL [Concomitant]
     Route: 048
  14. NEXIUM [Concomitant]
     Dosage: 7AM
     Route: 048
  15. COMPAZINE [Concomitant]
     Dosage: AS NECESSARY
     Route: 048
  16. AMBIEN [Concomitant]
     Dosage: AS NECESSARY
     Route: 048
  17. MAGNESIUM SULFATE [Concomitant]
     Route: 042
  18. POTASSIUM CHLORIDE [Concomitant]
     Route: 042
  19. METHOTREXATE [Suspect]
     Route: 042
     Dates: start: 20070206
  20. RITUXIMAB [Suspect]
     Route: 042
  21. IFOSFAMIDE [Suspect]
     Route: 065
     Dates: start: 20070206
  22. CEFEPIME [Concomitant]
     Route: 042
  23. DIFLUCAN [Concomitant]
     Route: 042
  24. CYCLOPHOSPHAMIDE [Suspect]
     Route: 065
     Dates: start: 20070206
  25. VINCRISTINE [Suspect]
     Indication: BURKITT'S LYMPHOMA
     Route: 065
  26. RITUXIMAB [Suspect]
     Indication: BURKITT'S LYMPHOMA
     Route: 042
  27. IFOSFAMIDE [Suspect]
     Indication: BURKITT'S LYMPHOMA
     Route: 065
  28. ETOPOSIDE [Suspect]
     Indication: BURKITT'S LYMPHOMA
     Route: 065
     Dates: start: 20070206
  29. ETOPOSIDE [Suspect]
     Route: 065
     Dates: end: 20070509
  30. OCEAN [Concomitant]
     Dosage: AS NECESSARY, 1 SPRAY IN EACH NOSTRIL
     Route: 045
  31. TRAZODONE HCL [Concomitant]
     Dosage: AS NECESSARY
     Route: 048
  32. DOXIL [Suspect]
     Indication: BURKITT'S LYMPHOMA
     Route: 042
     Dates: end: 20070509
  33. ESTRADIOL [Suspect]
     Dosage: 40MG/M2
     Route: 042
  34. CYCLOPHOSPHAMIDE [Suspect]
     Route: 065
  35. VINCRISTINE [Suspect]
     Route: 065
     Dates: end: 20070509
  36. CYTARABINE [Suspect]
     Indication: BURKITT'S LYMPHOMA
     Route: 065
     Dates: start: 20070206
  37. CYTARABINE [Suspect]
     Route: 065
  38. DEXTROSE [Concomitant]
     Route: 042
  39. BACTRIM [Concomitant]
     Dosage: MON, WED, FRI
     Route: 048
  40. CYCLOPHOSPHAMIDE [Suspect]
     Route: 065
  41. RITUXIMAB [Suspect]
     Route: 042
     Dates: end: 20070509
  42. ALLOPURINOL [Concomitant]
     Route: 048
  43. METOPROLOL TARTRATE [Concomitant]
     Route: 048
  44. EUCERIN [Concomitant]
     Route: 061
  45. SALIVART [Concomitant]
     Route: 048
  46. DOXIL [Suspect]
     Dosage: 40MG/M2
     Route: 042
  47. DOXIL [Suspect]
     Dosage: 40MG/M2
     Route: 042
     Dates: start: 20070206
  48. VINCRISTINE [Suspect]
     Route: 065
  49. VINCRISTINE [Suspect]
     Route: 065
     Dates: start: 20070202
  50. METHOTREXATE [Suspect]
     Indication: BURKITT'S LYMPHOMA
     Route: 042
  51. IFOSFAMIDE [Suspect]
     Route: 065
     Dates: end: 20070509
  52. ETOPOSIDE [Suspect]
     Route: 065
  53. CYTARABINE [Suspect]
     Route: 065
  54. ACYCLOVIR [Concomitant]
     Route: 042
  55. COMPAZINE [Concomitant]
     Dosage: AS NECESSARY
     Route: 042
  56. SODIUM BICARBONATE [Concomitant]
     Route: 042
  57. LEUCOVORIN CALCIUM [Concomitant]
     Route: 042
  58. HEPARIN [Concomitant]
     Dosage: 100 UNITS/ML FOR LOCK FLUSH
     Route: 042
  59. ZOFRAN [Concomitant]
     Dosage: AS NECESSARY
     Route: 042
  60. ZOFRAN [Concomitant]
     Dosage: AS NECESSARY
     Route: 048

REACTIONS (3)
  - LEFT VENTRICULAR DYSFUNCTION [None]
  - THROMBOCYTOPENIA [None]
  - LEUKOPENIA [None]
